FAERS Safety Report 5167833-8 (Version None)
Quarter: 2006Q4

REPORT INFORMATION
  Report Type: 
  Country: None (occurrence: None)
  Receive Date: 20061130
  Receipt Date: 20061130
  Transmission Date: 20070319
  Serious: Yes (Other)
  Sender: FDA-Public Use
  Company Number: None

PATIENT

DRUGS (1)
  1. ULTRAVIST 300 [Suspect]
     Indication: SCAN WITH CONTRAST
     Dosage: 1 DOSE

REACTIONS (2)
  - PRURITUS [None]
  - RASH [None]
